FAERS Safety Report 19897816 (Version 1)
Quarter: 2021Q3

REPORT INFORMATION
  Report Type: Other
  Country: CA (occurrence: CA)
  Receive Date: 20210929
  Receipt Date: 20210929
  Transmission Date: 20211014
  Serious: Yes (Disabling)
  Sender: FDA-Public Use
  Company Number: CA-APOTEX-2021AP043160

PATIENT
  Age: 30 Year
  Sex: Female
  Weight: 50 kg

DRUGS (1)
  1. CITALOPRAM [Suspect]
     Active Substance: CITALOPRAM HYDROBROMIDE
     Indication: ANXIETY
     Dosage: 80 MILLIGRAM
     Route: 065

REACTIONS (5)
  - Genital anaesthesia [Not Recovered/Not Resolved]
  - Sexual dysfunction [Not Recovered/Not Resolved]
  - Anorgasmia [Not Recovered/Not Resolved]
  - Overdose [Not Recovered/Not Resolved]
  - Libido decreased [Not Recovered/Not Resolved]
